FAERS Safety Report 15273735 (Version 2)
Quarter: 2019Q1

REPORT INFORMATION
  Report Type: Spontaneous
  Country: DE (occurrence: DE)
  Receive Date: 20180813
  Receipt Date: 20190226
  Transmission Date: 20190417
  Serious: Yes (Other)
  Sender: FDA-Public Use
  Company Number: PHHY2018DE071153

PATIENT
  Age: 58 Year
  Sex: Female

DRUGS (1)
  1. EXTAVIA [Suspect]
     Active Substance: INTERFERON BETA-1B
     Indication: PRODUCT USED FOR UNKNOWN INDICATION
     Dosage: 250 UG, UNK
     Route: 065
     Dates: start: 2012

REACTIONS (3)
  - Breast cancer [Unknown]
  - Neutropenia [Unknown]
  - Neuromyelitis optica spectrum disorder [Unknown]
